FAERS Safety Report 13281218 (Version 1)
Quarter: 2017Q1

REPORT INFORMATION
  Report Type: Report from Study
  Country: NL (occurrence: NL)
  Receive Date: 20170301
  Receipt Date: 20170301
  Transmission Date: 20170428
  Serious: Yes (Hospitalization, Other)
  Sender: FDA-Public Use
  Company Number: NL-SHIRE-NL201700107

PATIENT
  Age: 15 Year
  Sex: Male

DRUGS (1)
  1. IDURSULFASE [Suspect]
     Active Substance: IDURSULFASE
     Indication: MUCOPOLYSACCHARIDOSIS II
     Dosage: 0.5 MG/KG, 1X/WEEK
     Route: 041
     Dates: start: 20070626

REACTIONS (4)
  - Epilepsy [Recovered/Resolved]
  - Infusion related reaction [Recovered/Resolved]
  - Fall [Recovered/Resolved]
  - Concussion [Recovered/Resolved]

NARRATIVE: CASE EVENT DATE: 20130725
